FAERS Safety Report 5385908-5 (Version None)
Quarter: 2007Q3

REPORT INFORMATION
  Report Type: 
  Country: None (occurrence: None)
  Receive Date: 20070712
  Receipt Date: 20070704
  Transmission Date: 20080115
  Serious: Yes (Other)
  Sender: FDA-Public Use
  Company Number: DK-SHR-DK-2007-022616

PATIENT
  Age: 19 Year
  Sex: Female
  Weight: 62 kg

DRUGS (2)
  1. YASMIN [Suspect]
     Indication: ORAL CONTRACEPTION
     Dosage: 1 TAB(S), 21D/28D
     Route: 048
     Dates: start: 20060510, end: 20060730
  2. YASMIN [Suspect]
     Dosage: 1 TAB(S), 21D/28D
     Route: 048
     Dates: start: 20060924, end: 20061101

REACTIONS (2)
  - DEPRESSION [None]
  - MENTAL DISORDER [None]
